FAERS Safety Report 5177108-9 (Version None)
Quarter: 2006Q4

REPORT INFORMATION
  Report Type: 
  Country: None (occurrence: None)
  Receive Date: 20061218
  Receipt Date: 20050408
  Transmission Date: 20070319
  Serious: Yes (Death, Hospitalization)
  Sender: FDA-Public Use
  Company Number: GB-ROCHE-401513

PATIENT
  Age: 71 Year
  Sex: Male
  Weight: 60 kg

DRUGS (2)
  1. CAPECITABINE [Suspect]
     Dosage: 1150 MG TAKEN IN MORNING ^AM^, 1650 MG TAKEN IN EVENING ^PM^ TAKEN ON DAYS ONE THROUGH TWENTY-ONE O+
     Route: 048
     Dates: start: 20050112, end: 20050311
  2. GEMCITABINE [Suspect]
     Dosage: TAKEN ON DAYS ONE, EIGHT AND FIFTEEN OF A TWENTY EIGHT DAY CYCLE
     Route: 042
     Dates: start: 20050112, end: 20050311

REACTIONS (2)
  - GASTROINTESTINAL PERFORATION [None]
  - NEUTROPHIL COUNT DECREASED [None]
